FAERS Safety Report 9893758 (Version 2)
Quarter: 2014Q1

REPORT INFORMATION
  Report Type: Spontaneous
  Country: DE (occurrence: DE)
  Receive Date: 20140213
  Receipt Date: 20140221
  Transmission Date: 20141002
  Serious: Yes (Death, Life-Threatening, Hospitalization, Other)
  Sender: FDA-Public Use
  Company Number: DE-B.I. PHARMACEUTICALS,INC./RIDGEFIELD-2014-BI-06479DE

PATIENT
  Age: 92 Year
  Sex: Female
  Weight: 70 kg

DRUGS (3)
  1. PRADAXA [Suspect]
     Indication: ATRIAL FIBRILLATION
     Dosage: 220 MG
     Route: 048
     Dates: start: 201305
  2. VOLTAREN [Suspect]
     Indication: IRIDOCYCLITIS
     Dosage: 75 MG
     Route: 048
     Dates: start: 20140108, end: 20140122
  3. PREDNISOLON [Suspect]
     Indication: IRIDOCYCLITIS
     Dosage: 25 MG
     Route: 048
     Dates: start: 20140108, end: 20140122

REACTIONS (6)
  - Upper gastrointestinal haemorrhage [Fatal]
  - Cerebral ischaemia [Fatal]
  - Cardiovascular disorder [Fatal]
  - Haematemesis [Fatal]
  - Circulatory collapse [Fatal]
  - Haemorrhage [Unknown]
